FAERS Safety Report 6498925-9 (Version None)
Quarter: 2009Q4

REPORT INFORMATION
  Report Type: 
  Country: None (occurrence: None)
  Receive Date: 20091127
  Receipt Date: 20081112
  Transmission Date: 20100525
  Serious: No
  Sender: FDA-Public Use
  Company Number: 281604

PATIENT
  Sex: Female

DRUGS (1)
  1. NOVOLOG [Suspect]
     Indication: DIABETES MELLITUS
     Dosage: SUBCUTANEOUS
     Route: 058

REACTIONS (2)
  - DIABETES MELLITUS INADEQUATE CONTROL [None]
  - NEUROPATHY PERIPHERAL [None]
